FAERS Safety Report 11674447 (Version 2)
Quarter: 2015Q4

REPORT INFORMATION
  Report Type: Spontaneous
  Country: US (occurrence: US)
  Receive Date: 20151028
  Receipt Date: 20151210
  Transmission Date: 20160304
  Serious: Yes (Other)
  Sender: FDA-Public Use
  Company Number: US-PFIZER INC-2015360090

PATIENT
  Age: 80 Year
  Sex: Female
  Weight: 86 kg

DRUGS (1)
  1. AROMASIN [Suspect]
     Active Substance: EXEMESTANE
     Indication: BREAST CANCER
     Dosage: 25 MG, 1X/DAY

REACTIONS (3)
  - Cardiac failure congestive [Recovering/Resolving]
  - Myocardial infarction [Unknown]
  - Hypertension [Recovering/Resolving]
